FAERS Safety Report 5386683-0 (Version None)
Quarter: 2007Q3

REPORT INFORMATION
  Report Type: 
  Country: None (occurrence: None)
  Receive Date: 20070713
  Receipt Date: 20070604
  Transmission Date: 20080115
  Serious: Yes (Death, Hospitalization, Other)
  Sender: FDA-Public Use
  Company Number: JP-BRISTOL-MYERS SQUIBB COMPANY-13754312

PATIENT
  Age: 32 Year
  Sex: Male

DRUGS (9)
  1. EFAVIRENZ [Suspect]
     Indication: ACQUIRED IMMUNODEFICIENCY SYNDROME
     Route: 048
     Dates: start: 20060217, end: 20060719
  2. ENDOXAN [Suspect]
     Indication: PLASMABLASTIC LYMPHOMA
     Route: 042
     Dates: start: 20060201, end: 20060411
  3. RETROVIR [Suspect]
     Indication: ACQUIRED IMMUNODEFICIENCY SYNDROME
     Route: 048
     Dates: start: 20060217, end: 20060719
  4. EPIVIR [Suspect]
     Indication: ACQUIRED IMMUNODEFICIENCY SYNDROME
     Route: 048
     Dates: start: 20060217, end: 20060719
  5. ADRIAMYCIN PFS [Suspect]
     Indication: PLASMABLASTIC LYMPHOMA
     Route: 042
     Dates: start: 20060201, end: 20060411
  6. ONCOVIN [Suspect]
     Indication: PLASMABLASTIC LYMPHOMA
     Route: 042
     Dates: start: 20060201, end: 20060411
  7. PREDONINE [Suspect]
     Indication: PLASMABLASTIC LYMPHOMA
     Route: 048
     Dates: start: 20060223, end: 20060321
  8. GANCICLOVIR SODIUM [Suspect]
     Indication: CYTOMEGALOVIRUS ENTEROCOLITIS
     Route: 042
     Dates: start: 20060630, end: 20060719
  9. PENTAMIDINE ISETHIONATE [Concomitant]
     Dates: end: 20060719

REACTIONS (2)
  - BONE MARROW FAILURE [None]
  - MULTI-ORGAN FAILURE [None]
